FAERS Safety Report 8175084-8 (Version None)
Quarter: 2012Q1

REPORT INFORMATION
  Report Type: 
  Country: None (occurrence: None)
  Receive Date: 20120229
  Receipt Date: 20120222
  Transmission Date: 20120608
  Serious: Yes (Other)
  Sender: FDA-Public Use
  Company Number: PHHY2011DE90974

PATIENT
  Sex: Female
  Weight: 66 kg

DRUGS (2)
  1. GILENYA [Suspect]
     Indication: MULTIPLE SCLEROSIS
     Dosage: 0.5 MG, QD
     Route: 048
     Dates: start: 20110712
  2. BISOPROLOL FUMARATE AND HYDROCHLOROTHIAZIDE [Concomitant]
     Dosage: 5/12.5 MG
     Dates: start: 20080901

REACTIONS (14)
  - HUMERUS FRACTURE [None]
  - OEDEMA [None]
  - LYMPHOCYTE COUNT DECREASED [None]
  - C-REACTIVE PROTEIN INCREASED [None]
  - WHITE BLOOD CELL COUNT INCREASED [None]
  - GAMMA-GLUTAMYLTRANSFERASE INCREASED [None]
  - SMEAR CERVIX ABNORMAL [None]
  - MUSCULOSKELETAL PAIN [None]
  - INFLAMMATION [None]
  - BONE INFARCTION [None]
  - CYSTITIS [None]
  - EOSINOPHIL COUNT INCREASED [None]
  - TENDON DISORDER [None]
  - MEAN CELL VOLUME INCREASED [None]
